FAERS Safety Report 22118354 (Version 1)
Quarter: 2023Q1

REPORT INFORMATION
  Report Type: Spontaneous
  Country: US (occurrence: US)
  Receive Date: 20230321
  Receipt Date: 20230321
  Transmission Date: 20230418
  Serious: Yes (Other)
  Sender: FDA-Public Use
  Company Number: US-NOVOPROD-1038843

PATIENT
  Sex: Female

DRUGS (1)
  1. LEVEMIR [Suspect]
     Active Substance: INSULIN DETEMIR
     Indication: Type 2 diabetes mellitus
     Dosage: 30 IU, BID
     Route: 058

REACTIONS (10)
  - Rheumatoid arthritis [Not Recovered/Not Resolved]
  - Osteoarthritis [Not Recovered/Not Resolved]
  - Road traffic accident [Recovered/Resolved]
  - Nerve injury [Unknown]
  - Ligament injury [Unknown]
  - Rotator cuff syndrome [Not Recovered/Not Resolved]
  - Arthritis [Unknown]
  - Neuropathy peripheral [Unknown]
  - Arthritis [Unknown]
  - Vein disorder [Unknown]

NARRATIVE: CASE EVENT DATE: 20110101
